FAERS Safety Report 13632641 (Version 1)
Quarter: 2017Q2

REPORT INFORMATION
  Report Type: Spontaneous
  Country: US (occurrence: US)
  Receive Date: 20170531
  Receipt Date: 20170531
  Transmission Date: 20170830
  Serious: No
  Sender: FDA-Public Use
  Company Number: US-ASTELLAS-1470347

PATIENT
  Sex: Female

DRUGS (17)
  1. TARCEVA [Suspect]
     Active Substance: ERLOTINIB HYDROCHLORIDE
     Indication: LUNG NEOPLASM MALIGNANT
     Route: 048
     Dates: start: 20140926
  2. OXYCODONE [Concomitant]
     Active Substance: OXYCODONE
  3. PRAVASTATIN. [Concomitant]
     Active Substance: PRAVASTATIN
  4. MINOCYCLINE [Concomitant]
     Active Substance: MINOCYCLINE\MINOCYCLINE HYDROCHLORIDE
  5. CITALOPRAM [Concomitant]
     Active Substance: CITALOPRAM HYDROBROMIDE
  6. METFORMIN [Concomitant]
     Active Substance: METFORMIN HYDROCHLORIDE
  7. ROPINIROLE. [Concomitant]
     Active Substance: ROPINIROLE
  8. BUSPIRONE [Concomitant]
     Active Substance: BUSPIRONE HYDROCHLORIDE
  9. VITAMIN B12 [Concomitant]
     Active Substance: CYANOCOBALAMIN
  10. INSULIN [Concomitant]
     Active Substance: INSULIN NOS
  11. ESTRADIOL. [Concomitant]
     Active Substance: ESTRADIOL
  12. TARCEVA [Interacting]
     Active Substance: ERLOTINIB HYDROCHLORIDE
     Indication: MALIGNANT MELANOMA
     Route: 048
  13. ADDERALL [Interacting]
     Active Substance: AMPHETAMINE ASPARTATE\AMPHETAMINE SULFATE\DEXTROAMPHETAMINE SACCHARATE\DEXTROAMPHETAMINE SULFATE
     Indication: PRODUCT USED FOR UNKNOWN INDICATION
     Route: 065
  14. LEVOTHYROXINE. [Concomitant]
     Active Substance: LEVOTHYROXINE
  15. DULOXETINE. [Concomitant]
     Active Substance: DULOXETINE
  16. MEDROXYPROGESTERONE [Concomitant]
     Active Substance: MEDROXYPROGESTERONE
  17. CELEXA [Concomitant]
     Active Substance: CITALOPRAM HYDROBROMIDE

REACTIONS (16)
  - Dry skin [Unknown]
  - Crying [Unknown]
  - Visual acuity reduced [Unknown]
  - Rash pustular [Unknown]
  - Nail disorder [Unknown]
  - Fatigue [Unknown]
  - Diarrhoea [Unknown]
  - Rhinorrhoea [Unknown]
  - Restless legs syndrome [Unknown]
  - Rash [Unknown]
  - Pain [Unknown]
  - Skin toxicity [Unknown]
  - Influenza like illness [Unknown]
  - Skin ulcer [Unknown]
  - Lung disorder [Unknown]
  - Drug interaction [Unknown]
